FAERS Safety Report 14618505 (Version 2)
Quarter: 2021Q2

REPORT INFORMATION
  Report Type: Report from Study
  Country: BE (occurrence: BE)
  Receive Date: 20180309
  Receipt Date: 20210517
  Transmission Date: 20210716
  Serious: Yes (Hospitalization)
  Sender: FDA-Public Use
  Company Number: BE-PFIZER INC-2018004423

PATIENT
  Sex: Female

DRUGS (11)
  1. DAFALGAN [Concomitant]
     Active Substance: ACETAMINOPHEN
     Dosage: UNK
  2. CETIRIZINE [Concomitant]
     Active Substance: CETIRIZINE HYDROCHLORIDE
     Dosage: UNK
  3. LITICAN /00690801/ [Concomitant]
     Active Substance: ALIZAPRIDE
     Dosage: UNK
  4. D?CURE [Concomitant]
     Active Substance: CHOLECALCIFEROL
     Dosage: UNK
  5. FOLIC ACID. [Concomitant]
     Active Substance: FOLIC ACID
     Dosage: UNK
  6. LOTRIDERM [Concomitant]
     Active Substance: BETAMETHASONE DIPROPIONATE\CLOTRIMAZOLE
     Dosage: UNK
  7. MLN0002 [Suspect]
     Active Substance: VEDOLIZUMAB
     Indication: INFLAMMATORY BOWEL DISEASE
     Dosage: UNK
     Route: 042
     Dates: start: 20160810, end: 20190828
  8. VITAMIN B12 [Concomitant]
     Active Substance: CYANOCOBALAMIN
     Dosage: UNK
  9. MOTILIUM [Concomitant]
     Active Substance: DOMPERIDONE
     Dosage: UNK
  10. METHOTREXATE SODIUM. [Suspect]
     Active Substance: METHOTREXATE SODIUM
     Dosage: UNK
     Route: 065
  11. KAMILLOSAN /00512604/ [Concomitant]
     Active Substance: HERBALS\HOMEOPATHICS\MATRICARIA RECUTITA
     Dosage: UNK

REACTIONS (4)
  - Rosacea [Recovered/Resolved]
  - Obesity [Recovered/Resolved with Sequelae]
  - Drug intolerance [Recovered/Resolved]
  - Folliculitis [Recovered/Resolved]

NARRATIVE: CASE EVENT DATE: 201705
